FAERS Safety Report 7445056-7 (Version None)
Quarter: 2011Q2

REPORT INFORMATION
  Report Type: 
  Country: None (occurrence: None)
  Receive Date: 20110429
  Receipt Date: 20110419
  Transmission Date: 20111010
  Serious: Yes (Other)
  Sender: FDA-Public Use
  Company Number: PHEH2009US06729

PATIENT
  Age: 52 Year
  Sex: Male

DRUGS (11)
  1. INDERAL [Concomitant]
     Dosage: 20 MG, BID
  2. PROTONICS DELAYED RELEASE [Concomitant]
  3. MULTI-VITAMIN [Concomitant]
  4. FISH OIL [Concomitant]
  5. KLONOPIN [Concomitant]
  6. TEGRETOL-XR [Suspect]
     Indication: ANGER
     Dosage: 400 MG, BID
     Dates: start: 19890101
  7. PROPRANOLOL [Concomitant]
  8. FLUTICASONE PROPIONATE [Concomitant]
  9. ASPIRIN [Concomitant]
  10. TEGRETOL-XR [Suspect]
     Dosage: 300 MG, BID
     Dates: start: 20110414
  11. COENZYME Q10 [Concomitant]

REACTIONS (9)
  - MUSCULAR WEAKNESS [None]
  - FEELING HOT [None]
  - CHEST DISCOMFORT [None]
  - DIZZINESS [None]
  - ASTHENIA [None]
  - MUSCLE TIGHTNESS [None]
  - TREMOR [None]
  - PARKINSON'S DISEASE [None]
  - PANIC ATTACK [None]
